FAERS Safety Report 12692798 (Version 3)
Quarter: 2017Q1

REPORT INFORMATION
  Report Type: Spontaneous
  Country: US (occurrence: US)
  Receive Date: 20160829
  Receipt Date: 20170125
  Transmission Date: 20170428
  Serious: Yes (Other)
  Sender: FDA-Public Use
  Company Number: US-PFIZER INC-2016394768

PATIENT
  Age: 71 Year
  Sex: Female

DRUGS (4)
  1. IBRANCE [Suspect]
     Active Substance: PALBOCICLIB
     Dosage: 125 MG, UNK
     Dates: start: 20160807
  2. FASLODEX [Suspect]
     Active Substance: FULVESTRANT
     Dosage: UNK
  3. IBRANCE [Suspect]
     Active Substance: PALBOCICLIB
     Dosage: 125 MG, UNK
     Dates: start: 20160830
  4. IBRANCE [Suspect]
     Active Substance: PALBOCICLIB
     Dosage: 100 MG, UNK
     Dates: start: 20160807

REACTIONS (12)
  - Blister [Unknown]
  - Musculoskeletal pain [Unknown]
  - Constipation [Unknown]
  - Skin discolouration [Unknown]
  - Contusion [Unknown]
  - Vein disorder [Unknown]
  - Rash [Unknown]
  - Haemorrhage [Unknown]
  - Tremor [Unknown]
  - Nausea [Unknown]
  - Insomnia [Unknown]
  - Asthenia [Unknown]
